FAERS Safety Report 6756331-3 (Version None)
Quarter: 2010Q2

REPORT INFORMATION
  Report Type: 
  Country: None (occurrence: None)
  Receive Date: 20100604
  Receipt Date: 20100528
  Transmission Date: 20101027
  Serious: Yes (Hospitalization)
  Sender: FDA-Public Use
  Company Number: A0861912A

PATIENT
  Age: 77 Year
  Sex: Female

DRUGS (4)
  1. ALLI [Suspect]
     Indication: DRUG USE FOR UNKNOWN INDICATION
     Route: 048
     Dates: end: 20100526
  2. BLOOD THINNER [Suspect]
     Indication: THROMBOSIS
  3. MULTI-VITAMIN [Concomitant]
  4. CLONIDINE [Concomitant]
     Indication: HYPERTENSION
     Route: 048

REACTIONS (13)
  - ABDOMINAL PAIN UPPER [None]
  - BLOOD PRESSURE FLUCTUATION [None]
  - CHEST PAIN [None]
  - ERYTHEMA [None]
  - GLUCOSE TOLERANCE IMPAIRED [None]
  - HYPERTENSION [None]
  - INSOMNIA [None]
  - MALAISE [None]
  - NAUSEA [None]
  - PRURITUS GENERALISED [None]
  - THROMBOSIS [None]
  - THYROID DISORDER [None]
  - THYROID NEOPLASM [None]
